FAERS Safety Report 7205936-4 (Version None)
Quarter: 2011Q1

REPORT INFORMATION
  Report Type: 
  Country: None (occurrence: None)
  Receive Date: 20110103
  Receipt Date: 20101222
  Transmission Date: 20110831
  Serious: Yes (Hospitalization, Other)
  Sender: FDA-Public Use
  Company Number: US-BIOGENIDEC-2010BI040847

PATIENT
  Sex: Male
  Weight: 95 kg

DRUGS (2)
  1. AVONEX [Concomitant]
     Indication: MULTIPLE SCLEROSIS
     Route: 030
     Dates: start: 20061210
  2. TYSABRI [Suspect]
     Indication: MULTIPLE SCLEROSIS
     Route: 042
     Dates: start: 20070802

REACTIONS (10)
  - DIPLOPIA [None]
  - PAIN IN EXTREMITY [None]
  - DECREASED IMMUNE RESPONSIVENESS [None]
  - HEPATITIS C [None]
  - NAUSEA [None]
  - LOSS OF CONSCIOUSNESS [None]
  - INFLUENZA LIKE ILLNESS [None]
  - FATIGUE [None]
  - HEPATIC PAIN [None]
  - PAIN [None]
